FAERS Safety Report 5733452-5 (Version None)
Quarter: 2008Q2

REPORT INFORMATION
  Report Type: 
  Country: None (occurrence: None)
  Receive Date: 20080509
  Receipt Date: 20080424
  Transmission Date: 20081010
  Serious: Yes (Other)
  Sender: FDA-Public Use
  Company Number: PHNU2008DE01669

PATIENT
  Sex: Female

DRUGS (2)
  1. LAMISIL [Suspect]
     Indication: TINEA PEDIS
     Route: 048
  2. L-THYROXINE [Concomitant]

REACTIONS (5)
  - GLUCOSE TOLERANCE IMPAIRED [None]
  - HUNGER [None]
  - INCREASED APPETITE [None]
  - NERVOUSNESS [None]
  - WEIGHT INCREASED [None]
